FAERS Safety Report 20221741 (Version 1)
Quarter: 2021Q4

REPORT INFORMATION
  Report Type: Spontaneous
  Country: US (occurrence: US)
  Receive Date: 20211223
  Receipt Date: 20211223
  Transmission Date: 20220303
  Serious: Yes (Life-Threatening, Hospitalization, Other)
  Sender: FDA-Public Use
  Company Number: US-MLMSERVICE-20211215-3267361-1

PATIENT
  Age: 80 Year
  Sex: Male

DRUGS (1)
  1. OLANZAPINE [Suspect]
     Active Substance: OLANZAPINE
     Indication: Insomnia
     Dosage: 5 MG, UNKNOWN
     Route: 048

REACTIONS (5)
  - Respiratory alkalosis [Recovered/Resolved]
  - Hypotension [Recovered/Resolved]
  - Hyperventilation [Recovered/Resolved]
  - Tachypnoea [Recovered/Resolved]
  - Off label use [Recovered/Resolved]
